FAERS Safety Report 5129582-1 (Version None)
Quarter: 2006Q4

REPORT INFORMATION
  Report Type: 
  Country: None (occurrence: None)
  Receive Date: 20061012
  Receipt Date: 20060810
  Transmission Date: 20070319
  Serious: Yes (Hospitalization, Other)
  Sender: FDA-Public Use
  Company Number: 2006058184

PATIENT
  Age: 48 Year
  Sex: Female
  Weight: 77.1115 kg

DRUGS (8)
  1. BEXTRA [Suspect]
     Indication: BLADDER OPERATION
     Dosage: 20 MG (20 MG, 1 IN 1 D)
     Dates: start: 20021101
  2. BEXTRA [Suspect]
     Indication: SCIATIC NERVE INJURY
     Dosage: 20 MG (20 MG, 1 IN 1 D)
     Dates: start: 20021101
  3. ALLEGRA [Concomitant]
  4. PROTONIX [Concomitant]
  5. DYAZIDE [Concomitant]
  6. ZOCOR [Concomitant]
  7. PULMICORT [Concomitant]
  8. SINGULAIR [Concomitant]

REACTIONS (35)
  - ANXIETY [None]
  - ARTERIAL STENT INSERTION [None]
  - BACK INJURY [None]
  - BLOOD CHOLESTEROL INCREASED [None]
  - BLOOD CREATINE INCREASED [None]
  - BLOOD GLUCOSE INCREASED [None]
  - BLOOD POTASSIUM DECREASED [None]
  - BLOOD PRESSURE DECREASED [None]
  - BURNING SENSATION [None]
  - CHEST DISCOMFORT [None]
  - DENTAL DISCOMFORT [None]
  - DEPRESSION [None]
  - DISEASE RECURRENCE [None]
  - EXTRASYSTOLES [None]
  - FALL [None]
  - FEELING ABNORMAL [None]
  - HAND FRACTURE [None]
  - HEART RATE DECREASED [None]
  - HYPOAESTHESIA [None]
  - INSOMNIA [None]
  - JAW DISORDER [None]
  - JOINT INJURY [None]
  - LIMB INJURY [None]
  - MITRAL VALVE INCOMPETENCE [None]
  - MONOCYTE COUNT INCREASED [None]
  - MYOCARDIAL INFARCTION [None]
  - PATELLOFEMORAL PAIN SYNDROME [None]
  - POLLAKIURIA [None]
  - PULMONARY HYPERTENSION [None]
  - SCIATIC NERVE INJURY [None]
  - THROMBOSIS [None]
  - TRICUSPID VALVE INCOMPETENCE [None]
  - VENTRICULAR EXTRASYSTOLES [None]
  - WEIGHT INCREASED [None]
  - WHITE BLOOD CELL COUNT INCREASED [None]
